FAERS Safety Report 5241307-8 (Version None)
Quarter: 2007Q1

REPORT INFORMATION
  Report Type: 
  Country: None (occurrence: None)
  Receive Date: 20070220
  Receipt Date: 20070206
  Transmission Date: 20070707
  Serious: Yes (Other)
  Sender: FDA-Public Use
  Company Number: US-JNJFOC-20070202228

PATIENT
  Sex: Male
  Weight: 25.86 kg

DRUGS (5)
  1. CONCERTA [Suspect]
     Route: 048
  2. CONCERTA [Suspect]
     Route: 048
  3. CONCERTA [Suspect]
     Indication: ATTENTION DEFICIT/HYPERACTIVITY DISORDER
     Route: 048
  4. TENEX [Concomitant]
     Indication: AGGRESSION
  5. DDAVP (NEEDS NO REFRIGERATION) [Concomitant]
     Indication: ENURESIS

REACTIONS (1)
  - HALLUCINATION [None]
